FAERS Safety Report 18752055 (Version 1)
Quarter: 2021Q1

REPORT INFORMATION
  Report Type: Spontaneous
  Country: ZA (occurrence: ZA)
  Receive Date: 20210118
  Receipt Date: 20210118
  Transmission Date: 20210419
  Serious: Yes (Other)
  Sender: FDA-Public Use
  Company Number: ZA-PFIZER INC-2017412062

PATIENT
  Age: 52 Year
  Sex: Male
  Weight: 64 kg

DRUGS (4)
  1. ENBREL [Concomitant]
     Active Substance: ETANERCEPT
     Dosage: 50 MG, WEEKLY
     Route: 058
  2. METHOTREXATE SODIUM. [Suspect]
     Active Substance: METHOTREXATE SODIUM
     Indication: ANKYLOSING SPONDYLITIS
     Dosage: 15 MG, WEEKLY
     Dates: start: 20060818
  3. REVELLEX [Concomitant]
     Active Substance: INFLIXIMAB
     Dosage: 300 MG
     Dates: start: 20061025, end: 20070116
  4. ENBREL [Concomitant]
     Active Substance: ETANERCEPT
     Indication: ANKYLOSING SPONDYLITIS
     Dosage: 25 MG, WEEKLY
     Route: 058
     Dates: start: 20070201

REACTIONS (5)
  - Off label use [Unknown]
  - Aspartate aminotransferase increased [Unknown]
  - C-reactive protein increased [Unknown]
  - Alanine aminotransferase increased [Unknown]
  - Drug ineffective for unapproved indication [Unknown]

NARRATIVE: CASE EVENT DATE: 20080630
